FAERS Safety Report 24104766 (Version 1)
Quarter: 2024Q3

REPORT INFORMATION
  Report Type: Spontaneous
  Country: IL (occurrence: IL)
  Receive Date: 20240717
  Receipt Date: 20240717
  Transmission Date: 20241017
  Serious: Yes (Hospitalization, Other)
  Sender: PFIZER
  Company Number: IL-PFIZER INC-PV202400070963

PATIENT
  Age: 11 Year
  Sex: Male
  Weight: 35 kg

DRUGS (1)
  1. SOMATROPIN [Suspect]
     Active Substance: SOMATROPIN
     Indication: Growth hormone deficiency
     Dosage: 2.55 MG, DAILY
     Route: 058
     Dates: start: 20191208, end: 20240402

REACTIONS (1)
  - Neurilemmoma benign [Recovered/Resolved with Sequelae]

NARRATIVE: CASE EVENT DATE: 20240225
